FAERS Safety Report 5000805-2 (Version None)
Quarter: 2006Q2

REPORT INFORMATION
  Report Type: 
  Country: None (occurrence: None)
  Receive Date: 20060512
  Receipt Date: 20051222
  Transmission Date: 20061013
  Serious: Yes (Death, Hospitalization)
  Sender: FDA-Public Use
  Company Number: US-MERCK-0512USA03654

PATIENT
  Age: 96 Year
  Sex: Female
  Weight: 45 kg

DRUGS (16)
  1. VIOXX [Suspect]
     Indication: ARTHRITIS
     Route: 048
     Dates: start: 20000619, end: 20031112
  2. PROMETHAZINE [Concomitant]
     Route: 065
  3. CODEINE [Concomitant]
     Route: 065
  4. ZITHROMAX [Concomitant]
     Route: 065
  5. ULTRACET [Concomitant]
     Route: 065
  6. DIGOXIN [Concomitant]
     Route: 065
  7. COZAAR [Concomitant]
     Route: 065
  8. NEXIUM [Concomitant]
     Route: 065
  9. LISINOPRIL [Concomitant]
     Route: 065
  10. FUROSEMIDE [Concomitant]
     Route: 065
  11. ISORDIL [Concomitant]
     Route: 065
  12. NEURONTIN [Concomitant]
     Route: 065
  13. LANOXIN [Concomitant]
     Route: 065
  14. NUTRACORT [Concomitant]
     Route: 065
  15. FAMVIR [Concomitant]
     Route: 065
  16. ETIDOCAINE [Concomitant]
     Route: 065

REACTIONS (11)
  - ABDOMINAL DISCOMFORT [None]
  - ACUTE CORONARY SYNDROME [None]
  - ARTERIOSCLEROSIS [None]
  - CONCUSSION [None]
  - CORONARY ARTERY DISEASE [None]
  - DEHYDRATION [None]
  - GASTROINTESTINAL HAEMORRHAGE [None]
  - HOSPITALISATION [None]
  - HYPOVOLAEMIA [None]
  - MYOCARDIAL INFARCTION [None]
  - PELVIC FRACTURE [None]
